FAERS Safety Report 4488940-9 (Version None)
Quarter: 2004Q4

REPORT INFORMATION
  Report Type: 
  Country: None (occurrence: None)
  Receive Date: 20041029
  Receipt Date: 20041029
  Transmission Date: 20050328
  Serious: Yes (Disabling)
  Sender: FDA-Public Use
  Company Number: None

PATIENT
  Age: 52 Year
  Sex: Male
  Weight: 100 kg

DRUGS (5)
  1. CRESTOR [Suspect]
     Indication: ASTHENIA
     Dosage: 10 MG   DAILY   ORAL
     Route: 048
     Dates: start: 20040901, end: 20041020
  2. CRESTOR [Suspect]
     Indication: MALAISE
     Dosage: 10 MG   DAILY   ORAL
     Route: 048
     Dates: start: 20040901, end: 20041020
  3. CRESTOR [Suspect]
     Indication: MYALGIA
     Dosage: 10 MG   DAILY   ORAL
     Route: 048
     Dates: start: 20040901, end: 20041020
  4. CRESTOR [Suspect]
     Indication: PYREXIA
     Dosage: 10 MG   DAILY   ORAL
     Route: 048
     Dates: start: 20040901, end: 20041020
  5. CRESTOR [Suspect]
     Indication: RHABDOMYOLYSIS
     Dosage: 10 MG   DAILY   ORAL
     Route: 048
     Dates: start: 20040901, end: 20041020

REACTIONS (4)
  - NAUSEA [None]
  - PYREXIA [None]
  - RHABDOMYOLYSIS [None]
  - VOMITING [None]
